FAERS Safety Report 6147721-0 (Version None)
Quarter: 2009Q2

REPORT INFORMATION
  Report Type: 
  Country: None (occurrence: None)
  Receive Date: 20090408
  Receipt Date: 20090331
  Transmission Date: 20091009
  Serious: Yes (Hospitalization)
  Sender: FDA-Public Use
  Company Number: FR-AMGEN-US341484

PATIENT
  Sex: Female

DRUGS (8)
  1. ENBREL [Suspect]
     Indication: ANKYLOSING SPONDYLITIS
     Dosage: LYOPHILIZED FORMULATION: DOSE UNKNOWN
     Route: 058
     Dates: start: 20070101, end: 20090326
  2. RIVOTRIL [Concomitant]
     Dosage: UNKNOWN
  3. SEVREDOL [Concomitant]
     Dosage: UNKNOWN
     Route: 048
  4. PERISTALTINE [Concomitant]
     Dosage: UNKNOWN
     Route: 048
  5. MS CONTIN [Concomitant]
     Dosage: UNKNOWN
     Route: 048
  6. LANZOR [Concomitant]
     Dosage: UNKNOWN
     Route: 048
  7. REQUIP [Concomitant]
     Dosage: UNKNOWN
     Route: 048
  8. NSAIDS [Concomitant]

REACTIONS (11)
  - ANKYLOSING SPONDYLITIS [None]
  - BLOOD CHROMOGRANIN A INCREASED [None]
  - BLOOD PRESSURE SYSTOLIC INCREASED [None]
  - CARCINOID SYNDROME [None]
  - CONDITION AGGRAVATED [None]
  - DRUG EFFECT DECREASED [None]
  - HEADACHE [None]
  - HEART RATE INCREASED [None]
  - HYPERHIDROSIS [None]
  - TOOTH DISCOLOURATION [None]
  - VERTIGO [None]
